FAERS Safety Report 24299608 (Version 1)
Quarter: 2024Q3

REPORT INFORMATION
  Report Type: Spontaneous
  Country: US (occurrence: None)
  Receive Date: 20240909
  Receipt Date: 20240909
  Transmission Date: 20241017
  Serious: Yes (unspecified)
  Sender: Public
  Company Number: None

PATIENT
  Age: 43 Year
  Sex: Female
  Weight: 75.15 kg

DRUGS (2)
  1. NORTRIPTYLINE [Suspect]
     Active Substance: NORTRIPTYLINE
     Indication: Headache
     Dosage: OTHER QUANTITY : 2 CAPSULE(S);?FREQUENCY : AT BEDTIME;?
     Route: 048
     Dates: start: 20240610
  2. NORTRIPTYLINE [Concomitant]
     Active Substance: NORTRIPTYLINE

REACTIONS (14)
  - Panic attack [None]
  - Feeling abnormal [None]
  - Dyspnoea [None]
  - Anxiety [None]
  - Suicidal ideation [None]
  - Insomnia [None]
  - Dry mouth [None]
  - Thirst [None]
  - Asthenia [None]
  - Oropharyngeal pain [None]
  - Pyrexia [None]
  - Pharyngeal swelling [None]
  - Dysphagia [None]
  - Therapy interrupted [None]

NARRATIVE: CASE EVENT DATE: 20240819
